FAERS Safety Report 11629393 (Version 2)
Quarter: 2016Q2

REPORT INFORMATION
  Report Type: Report from Study
  Country: US (occurrence: US)
  Receive Date: 20151014
  Receipt Date: 20160502
  Transmission Date: 20160815
  Serious: Yes (Hospitalization, Other)
  Sender: FDA-Public Use
  Company Number: US-MYLANLABS-2015M1034339

PATIENT

DRUGS (3)
  1. DAUNORUBICIN [Suspect]
     Active Substance: DAUNORUBICIN
     Indication: ACUTE MYELOID LEUKAEMIA
     Dosage: 135 MG, QD
     Route: 042
     Dates: start: 20140612, end: 20140614
  2. CYTARABINE. [Suspect]
     Active Substance: CYTARABINE
     Indication: ACUTE MYELOID LEUKAEMIA
     Dosage: 225 MG, QD
     Route: 042
     Dates: start: 20140612, end: 20140619
  3. INVESTIGATIONAL DRUG [Suspect]
     Active Substance: INVESTIGATIONAL PRODUCT
     Indication: ACUTE MYELOID LEUKAEMIA
     Dosage: 100 MG, QD
     Route: 048
     Dates: start: 20140609, end: 20140622

REACTIONS (2)
  - Deep vein thrombosis [Recovering/Resolving]
  - Subdural haematoma [Recovered/Resolved]

NARRATIVE: CASE EVENT DATE: 2014
